FAERS Safety Report 14140317 (Version 1)
Quarter: 2017Q4

REPORT INFORMATION
  Report Type: Spontaneous
  Country: US (occurrence: US)
  Receive Date: 20171030
  Receipt Date: 20171030
  Transmission Date: 20180321
  Serious: No
  Sender: FDA-Public Use
  Company Number: US-ACCORD-053710

PATIENT
  Age: 70 Year
  Sex: Female
  Weight: 58.97 kg

DRUGS (1)
  1. ESCITALOPRAM [Suspect]
     Active Substance: ESCITALOPRAM OXALATE
     Indication: DEPRESSION
     Dosage: STARTED 10 MG QD, CUTTING TABLET IN HALF AND SELF RECEIVED 5 MG QD FROM 15-JUN-2015 TO 15-APR-2017
     Route: 048

REACTIONS (2)
  - Weight increased [Unknown]
  - Pain in extremity [Unknown]
